FAERS Safety Report 5776132-2 (Version None)
Quarter: 2008Q2

REPORT INFORMATION
  Report Type: 
  Country: None (occurrence: None)
  Receive Date: 20080613
  Receipt Date: 20080530
  Transmission Date: 20081010
  Serious: Yes (Hospitalization)
  Sender: FDA-Public Use
  Company Number: DSA_31947_2008

PATIENT
  Sex: Female

DRUGS (5)
  1. TEMESTA /00273201/ (TEMESTA - LORAZEPAM) (NOT SPECIFIED) [Suspect]
     Indication: DRUG USE FOR UNKNOWN INDICATION
     Dosage: (1 MG QD ORAL)
     Route: 048
     Dates: start: 20070724, end: 20070812
  2. ZYPREXA [Suspect]
     Indication: SCHIZOPHRENIA, CATATONIC TYPE
     Dosage: (15 MG QD ORAL), (10 MG QD ORAL), (75 MG QD ORAL)
     Route: 048
     Dates: start: 20070701, end: 20070801
  3. ZYPREXA [Suspect]
     Indication: SCHIZOPHRENIA, CATATONIC TYPE
     Dosage: (15 MG QD ORAL), (10 MG QD ORAL), (75 MG QD ORAL)
     Route: 048
     Dates: start: 20070802, end: 20070805
  4. ZYPREXA [Suspect]
     Indication: SCHIZOPHRENIA, CATATONIC TYPE
     Dosage: (15 MG QD ORAL), (10 MG QD ORAL), (75 MG QD ORAL)
     Route: 048
     Dates: start: 20070720
  5. VALVERDE /01561605/ [Concomitant]

REACTIONS (2)
  - PRURITUS [None]
  - RASH MACULO-PAPULAR [None]
